FAERS Safety Report 18536015 (Version 1)
Quarter: 2020Q4

REPORT INFORMATION
  Report Type: Spontaneous
  Country: CA (occurrence: CA)
  Receive Date: 20201123
  Receipt Date: 20201123
  Transmission Date: 20210114
  Serious: Yes (Death, Other)
  Sender: FDA-Public Use
  Company Number: CA-009507513-2011CAN011202

PATIENT
  Sex: Male

DRUGS (2)
  1. DURVALUMAB. [Suspect]
     Active Substance: DURVALUMAB
  2. KEYTRUDA [Suspect]
     Active Substance: PEMBROLIZUMAB

REACTIONS (7)
  - Death [Fatal]
  - Pancytopenia [Unknown]
  - Toxicity to various agents [Unknown]
  - Adverse event [Unknown]
  - Bone marrow failure [Unknown]
  - Diarrhoea [Unknown]
  - Off label use [Unknown]
